FAERS Safety Report 4772136-7 (Version None)
Quarter: 2005Q3

REPORT INFORMATION
  Report Type: 
  Country: None (occurrence: None)
  Receive Date: 20050916
  Receipt Date: 20050902
  Transmission Date: 20060218
  Serious: Yes (Hospitalization, Other)
  Sender: FDA-Public Use
  Company Number: 2005-US-00034

PATIENT
  Age: 65 Year
  Sex: Female

DRUGS (6)
  1. PROBENECID [Suspect]
     Indication: GOUT
     Dosage: 1.5-1.0MG QD
  2. PRAVASTATIN [Suspect]
     Dosage: 20MG QD
  3. SPIRONOLACTONE [Concomitant]
  4. FUROSEMIDE [Concomitant]
  5. ASPIRIN [Concomitant]
  6. LOSARTAN POTASSIUM [Concomitant]

REACTIONS (6)
  - BLOOD LACTATE DEHYDROGENASE INCREASED [None]
  - GOUT [None]
  - HYPOREFLEXIA [None]
  - MUSCULAR WEAKNESS [None]
  - MYOPATHY [None]
  - NERVE CONDUCTION STUDIES ABNORMAL [None]
